FAERS Safety Report 5718979-4 (Version None)
Quarter: 2008Q2

REPORT INFORMATION
  Report Type: 
  Country: None (occurrence: None)
  Receive Date: 20080425
  Receipt Date: 20080417
  Transmission Date: 20081010
  Serious: Yes (Hospitalization)
  Sender: FDA-Public Use
  Company Number: GB-ABBOTT-08P-167-0447983-00

PATIENT
  Sex: Female
  Weight: 85 kg

DRUGS (9)
  1. HUMIRA [Suspect]
     Indication: RHEUMATOID ARTHRITIS
     Route: 058
     Dates: start: 20030513
  2. PREDNISOLONE [Concomitant]
     Indication: DRUG USE FOR UNKNOWN INDICATION
  3. AMLODIPINE [Concomitant]
     Indication: DRUG USE FOR UNKNOWN INDICATION
  4. CELECOXIB [Concomitant]
     Indication: DRUG USE FOR UNKNOWN INDICATION
  5. INSULIN [Concomitant]
     Indication: DRUG USE FOR UNKNOWN INDICATION
  6. LANSOPRAZOLE [Concomitant]
     Indication: DRUG USE FOR UNKNOWN INDICATION
  7. RAMIPRIL [Concomitant]
     Indication: DRUG USE FOR UNKNOWN INDICATION
  8. TRAMADOL HCL [Concomitant]
     Indication: DRUG USE FOR UNKNOWN INDICATION
  9. LEFLUNOMIDE [Concomitant]
     Indication: DRUG USE FOR UNKNOWN INDICATION
     Dates: start: 20050115

REACTIONS (2)
  - DIABETIC COMA [None]
  - URINARY TRACT INFECTION [None]
